FAERS Safety Report 20381202 (Version 1)
Quarter: 2022Q1

REPORT INFORMATION
  Report Type: Spontaneous
  Country: US (occurrence: US)
  Receive Date: 20220127
  Receipt Date: 20220127
  Transmission Date: 20220423
  Serious: No
  Sender: FDA-Public Use
  Company Number: US-CELGENE-USA-20220105507

PATIENT
  Sex: Male
  Weight: 84.2 kg

DRUGS (1)
  1. REBLOZYL [Suspect]
     Active Substance: LUSPATERCEPT-AAMT
     Indication: Anaemia
     Dosage: 1 MILLIGRAM/KILOGRAM
     Route: 058
     Dates: start: 202112

REACTIONS (1)
  - Laboratory test abnormal [Unknown]
